FAERS Safety Report 6821810-7 (Version None)
Quarter: 2010Q3

REPORT INFORMATION
  Report Type: 
  Country: None (occurrence: None)
  Receive Date: 20100706
  Receipt Date: 20100706
  Transmission Date: 20110219
  Serious: No
  Sender: FDA-Public Use
  Company Number: None

PATIENT
  Sex: Female

DRUGS (8)
  1. CIMZIA [Suspect]
     Indication: PSORIATIC ARTHROPATHY
     Dosage: 400 MG Q 4 WK SUBCUTANEOUS
     Route: 058
     Dates: start: 20100203
  2. METHOTREXATE [Concomitant]
  3. MOBIC [Concomitant]
  4. OMEPRAZOLE [Concomitant]
  5. LEVOTHYROXINE SODIUM [Concomitant]
  6. FOLIC ACID [Concomitant]
  7. ADVAIR DISKUS 100/50 [Concomitant]
  8. ENBREL [Suspect]

REACTIONS (1)
  - DERMAL CYST [None]
